FAERS Safety Report 15121558 (Version 5)
Quarter: 2018Q4

REPORT INFORMATION
  Report Type: Report from Study
  Country: US (occurrence: US)
  Receive Date: 20180709
  Receipt Date: 20181123
  Transmission Date: 20190204
  Serious: Yes (Hospitalization)
  Sender: FDA-Public Use
  Company Number: PHEH2018US026840

PATIENT
  Sex: Female

DRUGS (3)
  1. COSENTYX [Suspect]
     Active Substance: SECUKINUMAB
     Dosage: 300 MG, QMO
     Route: 058
  2. METHOTREXATE. [Concomitant]
     Active Substance: METHOTREXATE
     Indication: PRODUCT USED FOR UNKNOWN INDICATION
     Dosage: UNK (ON MONDAY WEDNESDAY AND FRIDAY)
     Route: 065
  3. COSENTYX [Suspect]
     Active Substance: SECUKINUMAB
     Indication: PSORIASIS
     Dosage: 300 MG, QW
     Route: 058

REACTIONS (11)
  - Full blood count decreased [Unknown]
  - Memory impairment [Unknown]
  - Osteoporosis [Unknown]
  - Neuralgia [Unknown]
  - Arthropathy [Unknown]
  - Psoriasis [Unknown]
  - Fatigue [Unknown]
  - Ill-defined disorder [Unknown]
  - Nervous system disorder [Unknown]
  - Fall [Unknown]
  - Cardiac failure congestive [Unknown]
